FAERS Safety Report 4403759-2 (Version None)
Quarter: 2004Q3

REPORT INFORMATION
  Report Type: 
  Country: None (occurrence: None)
  Receive Date: 20040719
  Receipt Date: 20040712
  Transmission Date: 20050211
  Serious: Yes (Life-Threatening)
  Sender: FDA-Public Use
  Company Number: 04H-163-0266760-00

PATIENT
  Age: 58 Year
  Sex: Male
  Weight: 85 kg

DRUGS (6)
  1. BUPIVACAINE HCL [Suspect]
     Indication: ANAESTHESIA
     Dosage: 0.75% 12.9 MG, ONCE, RETROBULLAR/5 MIN. AFTER BUTORPHANOL
     Route: 056
  2. LIDOCAINE HYDROCHLORIDE [Suspect]
     Indication: ANAESTHESIA
     Dosage: 2%, 34.3 MG, ONCE, RETROBULBAR/5 MIN. AFTER BUTORPHANOL
     Route: 056
  3. HYALURONIDASE [Suspect]
     Indication: ANAESTHESIA
     Dosage: ONCE, RETROBULBAR/5 MIN. AFTER BUTORPHANOL
  4. ALPRAZOLAM [Concomitant]
  5. DEXTROSE IN LACTATED RINGER'S [Concomitant]
  6. BUTORPHANOL TARTRATE [Concomitant]

REACTIONS (13)
  - ANAESTHETIC COMPLICATION [None]
  - APNOEA [None]
  - BLINDNESS [None]
  - BRADYCARDIA [None]
  - COMA [None]
  - EYE MOVEMENT DISORDER [None]
  - EYELID PTOSIS [None]
  - LOSS OF CONSCIOUSNESS [None]
  - MYDRIASIS [None]
  - OPHTHALMOPLEGIA [None]
  - PALLOR [None]
  - PUPIL FIXED [None]
  - RESPIRATORY ARREST [None]
